FAERS Safety Report 19807540 (Version 1)
Quarter: 2021Q3

REPORT INFORMATION
  Report Type: Spontaneous
  Country: US (occurrence: US)
  Receive Date: 20210907
  Receipt Date: 20210907
  Transmission Date: 20211014
  Serious: Yes (Hospitalization)
  Sender: FDA-Public Use
  Company Number: None

PATIENT
  Sex: Female

DRUGS (24)
  1. DEXAMETHASON [Concomitant]
     Active Substance: DEXAMETHASONE
  2. DOXYCYCL HYC [Concomitant]
     Active Substance: DOXYCYCLINE HYCLATE
  3. MONTELUKAST [Concomitant]
     Active Substance: MONTELUKAST SODIUM
  4. OLMESA MEDOX [Concomitant]
  5. TRELEGY ELLIPTA [Concomitant]
     Active Substance: FLUTICASONE FUROATE\UMECLIDINIUM BROMIDE\VILANTEROL TRIFENATATE
  6. LEVALBUTEROL NEB [Concomitant]
  7. CELECOXIB. [Concomitant]
     Active Substance: CELECOXIB
  8. CLOPIDOGREL [Concomitant]
     Active Substance: CLOPIDOGREL BISULFATE
  9. HYDROCO/APAP [Concomitant]
     Active Substance: ACETAMINOPHEN\HYDROCODONE
  10. IVERMECTIN. [Concomitant]
     Active Substance: IVERMECTIN
  11. METOPROL SUC ER [Concomitant]
     Active Substance: METOPROLOL SUCCINATE
  12. MAGNESIUM?OX [Concomitant]
  13. COPAXONE [Suspect]
     Active Substance: GLATIRAMER ACETATE
     Indication: MULTIPLE SCLEROSIS
     Route: 058
     Dates: start: 20190126
  14. ESTRADOP; [Concomitant]
  15. PANTOPRAZOLE [Concomitant]
     Active Substance: PANTOPRAZOLE
  16. PREDNISONE. [Concomitant]
     Active Substance: PREDNISONE
  17. TOPIRAMATE. [Concomitant]
     Active Substance: TOPIRAMATE
  18. BENZONATATE. [Concomitant]
     Active Substance: BENZONATATE
  19. METHOCARBAM [Concomitant]
     Active Substance: METHOCARBAMOL
  20. ROBAXIN [Concomitant]
     Active Substance: METHOCARBAMOL
  21. SPIRIVA SPR [Concomitant]
  22. BREO ELLIPTA [Concomitant]
     Active Substance: FLUTICASONE FUROATE\VILANTEROL TRIFENATATE
  23. HYDROCHLOROT [Concomitant]
     Active Substance: HYDROCHLOROTHIAZIDE
  24. POT CL MICRO ER [Concomitant]

REACTIONS (2)
  - COVID-19 [None]
  - Fatigue [None]
